FAERS Safety Report 6692772-0 (Version None)
Quarter: 2010Q2

REPORT INFORMATION
  Report Type: 
  Country: None (occurrence: None)
  Receive Date: 20100422
  Receipt Date: 20100416
  Transmission Date: 20101027
  Serious: Yes (Life-Threatening, Other)
  Sender: FDA-Public Use
  Company Number: JP-ROXANE LABORATORIES, INC.-2010-RO-00446RO

PATIENT
  Age: 18 Year
  Sex: Female

DRUGS (10)
  1. MORPHINE [Suspect]
     Indication: GENERAL ANAESTHESIA
  2. MORPHINE [Suspect]
     Indication: PAIN
  3. FENTANYL [Suspect]
     Indication: GENERAL ANAESTHESIA
  4. FENTANYL [Suspect]
     Indication: PAIN
  5. DROPERIDOL [Suspect]
     Indication: GENERAL ANAESTHESIA
  6. DROPERIDOL [Suspect]
     Indication: PAIN
  7. HALOPERIDOL [Suspect]
     Indication: GENERAL ANAESTHESIA
  8. HALOPERIDOL [Suspect]
     Indication: PAIN
  9. DANTROLENE [Suspect]
     Indication: NEUROLEPTIC MALIGNANT SYNDROME
  10. DIAZEPAM [Concomitant]
     Indication: CATATONIA

REACTIONS (5)
  - CATATONIA [None]
  - DYSPNOEA [None]
  - HYPERHIDROSIS [None]
  - PYREXIA [None]
  - TACHYCARDIA [None]
